FAERS Safety Report 14294526 (Version 14)
Quarter: 2025Q3

REPORT INFORMATION
  Report Type: Other
  Country: EU (occurrence: EU)
  Receive Date: 20171218
  Receipt Date: 20250804
  Transmission Date: 20251021
  Serious: Yes (Hospitalization, Other)
  Sender: MACLEODS
  Company Number: EU-KRKA-PL2017K8738LIT

PATIENT

DRUGS (29)
  1. PANTOPRAZOLE [Suspect]
     Active Substance: PANTOPRAZOLE
     Indication: Product used for unknown indication
     Dosage: 20 MILLIGRAM, QD
     Route: 065
  2. PANTOPRAZOLE [Suspect]
     Active Substance: PANTOPRAZOLE
     Route: 065
  3. LEVOTHYROXINE SODIUM [Suspect]
     Active Substance: LEVOTHYROXINE SODIUM
     Indication: Product used for unknown indication
     Dosage: 25 MICROGRAM, QD
     Route: 065
  4. LEVOTHYROXINE SODIUM [Suspect]
     Active Substance: LEVOTHYROXINE SODIUM
     Route: 065
  5. RIVAROXABAN [Suspect]
     Active Substance: RIVAROXABAN
     Indication: Product used for unknown indication
     Route: 065
  6. RIVAROXABAN [Suspect]
     Active Substance: RIVAROXABAN
     Dosage: 15 MG, QD
     Route: 065
  7. CARVEDILOL [Suspect]
     Active Substance: CARVEDILOL
     Indication: Product used for unknown indication
     Dosage: 18.75 MILLIGRAM, QD
     Route: 065
  8. CARVEDILOL [Suspect]
     Active Substance: CARVEDILOL
     Route: 065
  9. CARVEDILOL [Suspect]
     Active Substance: CARVEDILOL
     Dosage: 18.75 MG, PER DAY
     Route: 065
  10. CARVEDILOL [Suspect]
     Active Substance: CARVEDILOL
     Dosage: 12.5 MG, PER DAY
     Route: 065
  11. CIPROFLOXACIN [Suspect]
     Active Substance: CIPROFLOXACIN
     Indication: Product used for unknown indication
     Dosage: 200 MILLIGRAM, QD
     Route: 042
  12. CIPROFLOXACIN [Suspect]
     Active Substance: CIPROFLOXACIN
     Dosage: 400 MG, QD
     Route: 042
  13. CIPROFLOXACIN [Suspect]
     Active Substance: CIPROFLOXACIN
     Dosage: 400 MG, QD (200 MG, 2X PER DAY)
     Route: 042
  14. CIPROFLOXACIN [Suspect]
     Active Substance: CIPROFLOXACIN
     Dosage: 800 MG, QD
     Route: 042
  15. AMIODARONE HYDROCHLORIDE [Suspect]
     Active Substance: AMIODARONE HYDROCHLORIDE
     Indication: Product used for unknown indication
     Route: 065
  16. AMIODARONE HYDROCHLORIDE [Suspect]
     Active Substance: AMIODARONE HYDROCHLORIDE
     Dosage: 200 MG, PER DAY (5 DAY A WEEK)
     Route: 065
     Dates: start: 201303, end: 2016
  17. PREDNISONE ACETATE [Suspect]
     Active Substance: PREDNISONE ACETATE
     Indication: Product used for unknown indication
     Dosage: 20 MG, QD
     Route: 065
  18. PREDNISONE ACETATE [Suspect]
     Active Substance: PREDNISONE ACETATE
     Dosage: 30 MG, PER DAY
     Route: 065
  19. PREDNISONE ACETATE [Suspect]
     Active Substance: PREDNISONE ACETATE
     Dosage: 10 MG, PER DAY
     Route: 065
  20. PREDNISONE ACETATE [Suspect]
     Active Substance: PREDNISONE ACETATE
     Route: 065
  21. NADROPARIN CALCIUM [Suspect]
     Active Substance: NADROPARIN CALCIUM
     Indication: Product used for unknown indication
     Route: 065
  22. NADROPARIN CALCIUM [Suspect]
     Active Substance: NADROPARIN CALCIUM
     Dosage: 0.4 MILLILITER, QD
     Route: 065
  23. NADROPARIN [Suspect]
     Active Substance: NADROPARIN
     Indication: Product used for unknown indication
     Dosage: 0.4 ML, QD (LOW MOLECULAR MASS)
     Route: 065
  24. HEPARIN SODIUM [Suspect]
     Active Substance: HEPARIN SODIUM
     Indication: Product used for unknown indication
     Dosage: 0.4 MILLILITER, QD, (DF)
     Route: 065
  25. HEPARIN SODIUM [Suspect]
     Active Substance: HEPARIN SODIUM
     Dosage: 0.4 MILLILITER, QD, (DF)
     Route: 065
  26. FUROSEMIDE [Suspect]
     Active Substance: FUROSEMIDE
     Indication: Product used for unknown indication
     Route: 065
  27. FUROSEMIDE [Suspect]
     Active Substance: FUROSEMIDE
     Dosage: 40 MG/DAY
     Route: 065
  28. CALCIUM [Concomitant]
     Active Substance: CALCIUM
     Indication: Product used for unknown indication
     Route: 065
  29. VITAMIN D NOS [Concomitant]
     Active Substance: CHOLECALCIFEROL\ERGOCALCIFEROL
     Indication: Product used for unknown indication
     Route: 065

REACTIONS (18)
  - Atrial fibrillation [Unknown]
  - Pulmonary toxicity [Recovered/Resolved]
  - Interstitial lung disease [Recovered/Resolved]
  - Oliguria [Recovering/Resolving]
  - Cough [Recovered/Resolved]
  - Ventricular arrhythmia [Unknown]
  - Dyspnoea exertional [Recovered/Resolved]
  - Palpitations [Recovered/Resolved]
  - Exercise tolerance decreased [Recovered/Resolved]
  - Dyspnoea exertional [Recovered/Resolved]
  - Interstitial lung disease [Recovered/Resolved]
  - Interstitial lung disease [Recovered/Resolved]
  - Dyspnoea [Recovered/Resolved]
  - Dyspnoea exertional [Recovered/Resolved]
  - Fatigue [Recovered/Resolved]
  - Oedema peripheral [Unknown]
  - Diarrhoea [Recovering/Resolving]
  - Diarrhoea [Recovering/Resolving]

NARRATIVE: CASE EVENT DATE: 20160101
